FAERS Safety Report 7602514-X (Version None)
Quarter: 2011Q3

REPORT INFORMATION
  Report Type: 
  Country: None (occurrence: None)
  Receive Date: 20110701
  Receipt Date: 20110620
  Transmission Date: 20111222
  Serious: Yes (Hospitalization, Other)
  Sender: FDA-Public Use
  Company Number: US-1186775

PATIENT
  Age: 54 Year
  Sex: Female
  Weight: 97.5234 kg

DRUGS (11)
  1. CARVEDILOL [Concomitant]
  2. TRAVATAN [Suspect]
     Indication: GLAUCOMA
     Dosage: (OPHTHALMIC)
     Route: 047
     Dates: start: 20110101
  3. AZOPT [Concomitant]
  4. ASMANEX TWISTHALER [Concomitant]
  5. SPIRONOLACTONE [Concomitant]
  6. DIOVAN [Concomitant]
  7. SINGULAIR [Concomitant]
  8. SPIRIVA [Concomitant]
  9. ALPHAGAN [Concomitant]
  10. FUROSEMIDE [Concomitant]
  11. PRILOSEC [Concomitant]

REACTIONS (5)
  - RENAL DISORDER [None]
  - INTESTINAL PERFORATION [None]
  - MULTIPLE ALLERGIES [None]
  - HYPERSENSITIVITY [None]
  - MYOCARDIAL INFARCTION [None]
